FAERS Safety Report 16526128 (Version 2)
Quarter: 2019Q3

REPORT INFORMATION
  Report Type: Spontaneous
  Country: US (occurrence: US)
  Receive Date: 20190703
  Receipt Date: 20190710
  Transmission Date: 20191004
  Serious: No
  Sender: FDA-Public Use
  Company Number: US-SHIRE-US201921384

PATIENT
  Age: 38 Year
  Sex: Female
  Weight: 170 kg

DRUGS (2)
  1. MOTEGRITY [Suspect]
     Active Substance: PRUCALOPRIDE SUCCINATE
     Indication: CONSTIPATION
  2. MOTEGRITY [Suspect]
     Active Substance: PRUCALOPRIDE SUCCINATE
     Indication: GASTROINTESTINAL MOTILITY DISORDER
     Dosage: 2 MILLIGRAM, 1X/DAY:QD
     Route: 048
     Dates: start: 20190627, end: 20190627

REACTIONS (13)
  - Memory impairment [Unknown]
  - Fatigue [Recovering/Resolving]
  - Feeling abnormal [Not Recovered/Not Resolved]
  - Nausea [Recovering/Resolving]
  - Blood pressure fluctuation [Not Recovered/Not Resolved]
  - Off label use [Not Recovered/Not Resolved]
  - Oropharyngeal pain [Recovering/Resolving]
  - Dizziness [Recovering/Resolving]
  - Adverse drug reaction [Not Recovered/Not Resolved]
  - Vision blurred [Recovering/Resolving]
  - Malaise [Not Recovered/Not Resolved]
  - Muscular weakness [Unknown]
  - Migraine [Recovered/Resolved]

NARRATIVE: CASE EVENT DATE: 201906
